FAERS Safety Report 16648433 (Version 1)
Quarter: 2019Q3

REPORT INFORMATION
  Report Type: Spontaneous
  Country: US (occurrence: US)
  Receive Date: 20190730
  Receipt Date: 20190730
  Transmission Date: 20191004
  Serious: No
  Sender: FDA-Public Use
  Company Number: US-PERRIGO-18US008771

PATIENT
  Age: 89 Year
  Sex: Male
  Weight: 72.56 kg

DRUGS (2)
  1. AMMONIUM LACTATE. [Suspect]
     Active Substance: AMMONIUM LACTATE
     Indication: PRURITUS
     Dosage: 1 APPLICATION, BID
     Route: 061
     Dates: start: 20180815, end: 20180821
  2. AMMONIUM LACTATE. [Suspect]
     Active Substance: AMMONIUM LACTATE
     Indication: RASH

REACTIONS (5)
  - Application site swelling [Not Recovered/Not Resolved]
  - Off label use [Recovered/Resolved]
  - Condition aggravated [Not Recovered/Not Resolved]
  - Application site discolouration [Not Recovered/Not Resolved]
  - Application site erythema [Not Recovered/Not Resolved]

NARRATIVE: CASE EVENT DATE: 201808
